FAERS Safety Report 11236226 (Version 1)
Quarter: 2015Q3

REPORT INFORMATION
  Report Type: Report from Study
  Country: CA (occurrence: CA)
  Receive Date: 20150702
  Receipt Date: 20150702
  Transmission Date: 20151125
  Serious: Yes (Hospitalization)
  Sender: FDA-Public Use
  Company Number: CA-ABBVIE-15P-028-1415581-00

PATIENT
  Age: 49 Year
  Sex: Female
  Weight: 82.7 kg

DRUGS (4)
  1. RIBAVIRIN. [Suspect]
     Active Substance: RIBAVIRIN
     Indication: HEPATITIS C
     Dosage: 12 WEEK TREATMENT
     Route: 048
     Dates: start: 20150506
  2. ABT-333 [Suspect]
     Active Substance: DASABUVIR
     Indication: HEPATITIS C
     Dosage: 250MG BID
     Route: 048
     Dates: start: 20150506
  3. TYLENOL WITH CODEINE [Concomitant]
     Active Substance: ACETAMINOPHEN\CODEINE PHOSPHATE
     Indication: BACK PAIN
     Route: 048
     Dates: start: 201407
  4. ABT-450/RITONAVIR/ABT-267 [Suspect]
     Active Substance: OMBITASVIR\PARITAPREVIR\RITONAVIR
     Indication: HEPATITIS C
     Dosage: 150/100/25 MG QD
     Route: 048
     Dates: start: 20150506

REACTIONS (1)
  - Schizoaffective disorder [Recovering/Resolving]

NARRATIVE: CASE EVENT DATE: 20150615
